FAERS Safety Report 22347511 (Version 2)
Quarter: 2023Q2

REPORT INFORMATION
  Report Type: Spontaneous
  Country: JP (occurrence: JP)
  Receive Date: 20230521
  Receipt Date: 20230615
  Transmission Date: 20230722
  Serious: Yes (Hospitalization)
  Sender: FDA-Public Use
  Company Number: JP-CHUGAI-2023018004

PATIENT
  Age: 8 Decade
  Sex: Female

DRUGS (3)
  1. AVASTIN [Suspect]
     Active Substance: BEVACIZUMAB
     Indication: Rectal cancer
     Dosage: UNK
     Route: 041
     Dates: start: 202208
  2. UFT [Concomitant]
     Active Substance: TEGAFUR\URACIL
     Indication: Rectal cancer
     Dosage: UNK
     Route: 048
     Dates: start: 202208
  3. LEUCOVORIN CALCIUM [Concomitant]
     Active Substance: LEUCOVORIN CALCIUM
     Indication: Rectal cancer
     Dosage: UNK
     Route: 065
     Dates: start: 202208

REACTIONS (1)
  - Arteriovenous fistula [Recovering/Resolving]

NARRATIVE: CASE EVENT DATE: 20230401
